FAERS Safety Report 21346474 (Version 1)
Quarter: 2022Q3

REPORT INFORMATION
  Report Type: Spontaneous
  Country: US (occurrence: US)
  Receive Date: 20220917
  Receipt Date: 20220917
  Transmission Date: 20221027
  Serious: Yes (Death)
  Sender: FDA-Public Use
  Company Number: US-BOIRON-202200485

PATIENT
  Age: 88 Year
  Sex: Female

DRUGS (2)
  1. HOMEOPATHICS [Suspect]
     Active Substance: HOMEOPATHICS
     Indication: Arthritis
     Dosage: UNK DAILY
     Dates: start: 202208
  2. XARELTO [Concomitant]
     Active Substance: RIVAROXABAN

REACTIONS (2)
  - Cerebrovascular accident [Fatal]
  - Blood viscosity decreased [Unknown]

NARRATIVE: CASE EVENT DATE: 20220101
